FAERS Safety Report 12159863 (Version 1)
Quarter: 2016Q1

REPORT INFORMATION
  Report Type: Spontaneous
  Country: GB (occurrence: GB)
  Receive Date: 20160308
  Receipt Date: 20160308
  Transmission Date: 20160526
  Serious: Yes (Disabling, Other)
  Sender: FDA-Public Use
  Company Number: GB-TEVA-640395ACC

PATIENT
  Age: 30 Year
  Sex: Female
  Weight: 124 kg

DRUGS (8)
  1. NAPROXEN. [Concomitant]
     Active Substance: NAPROXEN
  2. SALBUTAMOL [Concomitant]
     Active Substance: ALBUTEROL
  3. PREGABALIN. [Concomitant]
     Active Substance: PREGABALIN
  4. DULOXETINE HYDROCHLORIDE. [Suspect]
     Active Substance: DULOXETINE HYDROCHLORIDE
     Indication: FIBROMYALGIA
     Route: 048
     Dates: start: 20151216, end: 20160214
  5. DESLORATADINE. [Concomitant]
     Active Substance: DESLORATADINE
  6. PARACETAMOL [Concomitant]
     Active Substance: ACETAMINOPHEN
  7. TRAMADOL HYDROCHLORIDE. [Concomitant]
     Active Substance: TRAMADOL HYDROCHLORIDE
  8. VITAMIN D3 [Concomitant]
     Active Substance: CHOLECALCIFEROL

REACTIONS (16)
  - Dizziness [Not Recovered/Not Resolved]
  - Night sweats [Recovering/Resolving]
  - Inappropriate affect [Recovering/Resolving]
  - Tinnitus [Recovering/Resolving]
  - Paraesthesia [Recovering/Resolving]
  - Fatigue [Recovering/Resolving]
  - Drug withdrawal headache [Not Recovered/Not Resolved]
  - Irritability [Recovering/Resolving]
  - Mood swings [Recovering/Resolving]
  - Nightmare [Recovering/Resolving]
  - Muscle spasms [Recovering/Resolving]
  - Hypertension [Not Recovered/Not Resolved]
  - Nausea [Not Recovered/Not Resolved]
  - Malaise [Recovering/Resolving]
  - Anger [Not Recovered/Not Resolved]
  - Gastrointestinal motility disorder [Recovering/Resolving]

NARRATIVE: CASE EVENT DATE: 20160103
